FAERS Safety Report 12390852 (Version 1)
Quarter: 2016Q2

REPORT INFORMATION
  Report Type: Spontaneous
  Country: CH (occurrence: CH)
  Receive Date: 20160520
  Receipt Date: 20160520
  Transmission Date: 20160815
  Serious: Yes (Hospitalization, Other)
  Sender: FDA-Public Use
  Company Number: CH-DSJP-DSE-2016-116853

PATIENT

DRUGS (10)
  1. PARACETAMOL SINTETICA [Suspect]
     Active Substance: ACETAMINOPHEN
     Indication: PAIN IN EXTREMITY
     Dosage: 1000 MG, SINGLE
     Route: 041
     Dates: start: 20160406, end: 20160406
  2. ELTROXIN [Concomitant]
     Active Substance: LEVOTHYROXINE
     Indication: PRODUCT USED FOR UNKNOWN INDICATION
     Dosage: 0.1 MG, QD
  3. FENTANYL CURAMED [Suspect]
     Active Substance: FENTANYL CITRATE
     Indication: PAIN IN EXTREMITY
     Dosage: 50 ?G, SINGLE
     Route: 041
     Dates: start: 20160406, end: 20160406
  4. MORPHINE [Suspect]
     Active Substance: MORPHINE
     Indication: PAIN IN EXTREMITY
     Dosage: 10 MG, TOTAL
     Route: 041
     Dates: start: 20160406, end: 20160406
  5. PARACETAMOL SINTETICA [Suspect]
     Active Substance: ACETAMINOPHEN
     Dosage: UNK
     Route: 048
     Dates: start: 20160407
  6. ASPIRIN CARDIO [Concomitant]
     Active Substance: ASPIRIN
     Indication: PRODUCT USED FOR UNKNOWN INDICATION
     Dosage: 100 MG, QD
  7. NEBIVOLOL. [Concomitant]
     Active Substance: NEBIVOLOL
     Indication: PRODUCT USED FOR UNKNOWN INDICATION
     Dosage: 2.5 MG, QD
  8. BECOZYME                           /06817001/ [Concomitant]
     Indication: PRODUCT USED FOR UNKNOWN INDICATION
     Dosage: 1 DF, QD
  9. FOLIC ACID. [Concomitant]
     Active Substance: FOLIC ACID
     Indication: PRODUCT USED FOR UNKNOWN INDICATION
     Dosage: 1 MG, QD
  10. OLMETEC PLUS 20 MG / 12,5 MG [Suspect]
     Active Substance: HYDROCHLOROTHIAZIDE\OLMESARTAN MEDOXOMIL
     Indication: HYPERTENSION
     Dosage: 20/12.5MG, QD
     Route: 048
     Dates: end: 20160407

REACTIONS (6)
  - Type I hypersensitivity [Recovered/Resolved]
  - Angioedema [Recovered/Resolved]
  - Hyponatraemia [Recovering/Resolving]
  - Dysphagia [Recovered/Resolved]
  - Dyspnoea [Recovered/Resolved]
  - Pharyngeal oedema [Recovered/Resolved]

NARRATIVE: CASE EVENT DATE: 20160406
